FAERS Safety Report 6148072-0 (Version None)
Quarter: 2009Q2

REPORT INFORMATION
  Report Type: 
  Country: None (occurrence: None)
  Receive Date: 20090408
  Receipt Date: 20090403
  Transmission Date: 20091009
  Serious: Yes (Hospitalization, Other)
  Sender: FDA-Public Use
  Company Number: B0565398A

PATIENT
  Sex: Female

DRUGS (1)
  1. ALKERAN [Suspect]
     Indication: MULTIPLE MYELOMA
     Dosage: 4MG TWICE PER DAY
     Route: 048
     Dates: start: 20010701, end: 20081026

REACTIONS (1)
  - CHRONIC MYELOMONOCYTIC LEUKAEMIA [None]
